FAERS Safety Report 8804630 (Version 1)
Quarter: 2012Q4

REPORT INFORMATION
  Report Type: 
  Country: US (occurrence: US)
  Receive Date: 20120924
  Receipt Date: 20120924
  Transmission Date: 20130627
  Serious: No
  Sender: FDA-Public Use
  Company Number: US-B.I. PHARMACEUTICALS,INC./RIDGEFIELD-2012-BP-22866BP

PATIENT
  Age: 76 Year
  Sex: Female
  Weight: 139 kg

DRUGS (5)
  1. PRADAXA [Suspect]
     Indication: ATRIAL FIBRILLATION
     Dosage: 300 mg
     Route: 048
     Dates: start: 20110901
  2. HYDROCHLOROTHIAZIDE [Concomitant]
     Indication: SWELLING
     Dosage: 100 mg
     Route: 048
     Dates: start: 2002
  3. COREG [Concomitant]
     Indication: CARDIAC DISORDER
     Dosage: 12.5 mg
     Route: 048
     Dates: start: 2011
  4. LOSARTAN [Concomitant]
     Indication: HYPERTENSION
     Dosage: 100 mg
     Route: 048
     Dates: start: 2011
  5. ARMOUR THYROID [Concomitant]
     Indication: HYPOTHYROIDISM
     Dosage: 90 mg
     Route: 048

REACTIONS (7)
  - Oedema peripheral [Not Recovered/Not Resolved]
  - Fall [Recovered/Resolved]
  - Head injury [Recovered/Resolved]
  - Dyspepsia [Not Recovered/Not Resolved]
  - Back pain [Not Recovered/Not Resolved]
  - Musculoskeletal discomfort [Not Recovered/Not Resolved]
  - Oedema peripheral [Not Recovered/Not Resolved]
